FAERS Safety Report 18562223 (Version 1)
Quarter: 2020Q4

REPORT INFORMATION
  Report Type: Other
  Country: GB (occurrence: GB)
  Receive Date: 20201201
  Receipt Date: 20201201
  Transmission Date: 20210114
  Serious: Yes (Death, Other)
  Sender: FDA-Public Use
  Company Number: GB-DENTSPLY-2020SCDP000372

PATIENT
  Age: 2 Week
  Sex: Male
  Weight: 3.1 kg

DRUGS (1)
  1. PRILOCAINE AND LIDOCAINE [Suspect]
     Active Substance: LIDOCAINE\PRILOCAINE
     Indication: LOCAL ANAESTHESIA
     Dosage: ESTIMATED LESS THAN 0.5G
     Route: 003
     Dates: start: 20201101, end: 20201101

REACTIONS (3)
  - Circulatory collapse [Fatal]
  - Floppy infant [Fatal]
  - Pallor [Fatal]

NARRATIVE: CASE EVENT DATE: 20201101
